FAERS Safety Report 5415007-5 (Version None)
Quarter: 2007Q3

REPORT INFORMATION
  Report Type: 
  Country: None (occurrence: None)
  Receive Date: 20070813
  Receipt Date: 20070813
  Transmission Date: 20080115
  Serious: No
  Sender: FDA-Public Use
  Company Number: None

PATIENT
  Age: 54 Year
  Sex: Male

DRUGS (3)
  1. ISOSULFAN BLUE [Suspect]
     Dates: start: 20070308, end: 20070308
  2. POTASSIUM PHOSPHATES [Suspect]
     Dates: start: 20070308, end: 20070308
  3. SODIUM PHOSPHATES [Suspect]
     Dates: start: 20070308, end: 20070308

REACTIONS (2)
  - ANGIOEDEMA [None]
  - HYPOTENSION [None]
